FAERS Safety Report 10049102 (Version 2)
Quarter: 2014Q2

REPORT INFORMATION
  Report Type: Spontaneous
  Country: DE (occurrence: DE)
  Receive Date: 20140401
  Receipt Date: 20140610
  Transmission Date: 20141212
  Serious: Yes (Life-Threatening, Hospitalization, Other)
  Sender: FDA-Public Use
  Company Number: DE-UCBSA-115876

PATIENT
  Age: 76 Year
  Sex: Female
  Weight: 85 kg

DRUGS (18)
  1. CIMZIA [Suspect]
     Indication: PSORIATIC ARTHROPATHY
     Dosage: 200 MG, EV 2 WEEKS(QOW)
     Route: 058
     Dates: start: 201310, end: 20140226
  2. NOVALGIN [Suspect]
     Indication: OROPHARYNGEAL PAIN
     Dosage: 1 G, 4X/DAY (QID)
     Route: 048
     Dates: start: 20140307, end: 20140310
  3. ACETYLSALICYLIC ACID [Concomitant]
     Indication: CORONARY ARTERY DISEASE
     Dosage: 100 MG, ONCE DAILY (QD)
     Route: 048
  4. CLINDAMYCINE [Concomitant]
     Indication: BODY TEMPERATURE INCREASED
     Dosage: UNK
  5. CLINDAMYCINE [Concomitant]
     Indication: OROPHARYNGEAL PAIN
     Dosage: 300 MG, 3X/DAY (TID)
     Route: 048
     Dates: start: 20140220, end: 20140307
  6. AMPICILLINE [Concomitant]
     Indication: BODY TEMPERATURE INCREASED
     Dosage: 3 G, 3X/DAY (TID)
     Route: 042
     Dates: start: 20140307, end: 20140313
  7. AMPICILLINE [Concomitant]
     Indication: OROPHARYNGEAL PAIN
  8. BISOPROLOL [Concomitant]
     Dosage: 2.5 MG, ONCE DAILY (QD)
  9. SIMVASTATIN [Concomitant]
     Dosage: 20 MG, ONCE DAILY (QD)
  10. TORASEMID [Concomitant]
     Dosage: 10 MG, ONCE DAILY (QD)
  11. PANTOPRAZOL [Concomitant]
     Dosage: 40 MG, ONCE DAILY (QD)
  12. BUDENOFALK [Concomitant]
     Dosage: 3 MG, ONCE DAILY (QD)
  13. FOL [Concomitant]
     Dosage: 5 MG, ONCE DAILY (QD)
  14. VITAMIN B12 [Concomitant]
     Dosage: EVERY THREE WEEKS IM. TO THE NORMAL VALUE, THEN 500 MG IM. EVERY?3 TO 6 MONTHS 500MG IM
  15. CETIRIZINE [Concomitant]
     Dosage: 10 MG
  16. VALORON [Concomitant]
     Dosage: UNK, 2X/DAY (BID)
  17. EUTHYROX [Concomitant]
     Dosage: 50 ?G, ONCE DAILY (QD)
  18. CALCIGEN D [Concomitant]
     Dosage: UNK, ONCE DAILY (QD)

REACTIONS (1)
  - Agranulocytosis [Recovering/Resolving]
